FAERS Safety Report 15316641 (Version 4)
Quarter: 2019Q1

REPORT INFORMATION
  Report Type: Report from Study
  Country: FR (occurrence: FR)
  Receive Date: 20180824
  Receipt Date: 20190215
  Transmission Date: 20190417
  Serious: Yes (Other)
  Sender: FDA-Public Use
  Company Number: FR-PFIZER INC-2018341308

PATIENT
  Age: 71 Year
  Sex: Male
  Weight: 82 kg

DRUGS (21)
  1. GEMCITABINE HYDROCHLORIDE. [Suspect]
     Active Substance: GEMCITABINE HYDROCHLORIDE
     Dosage: 1520 MG, CYCLE 3, DAY 8
     Dates: start: 20180504, end: 20180504
  2. GEMCITABINE HYDROCHLORIDE. [Suspect]
     Active Substance: GEMCITABINE HYDROCHLORIDE
     Dosage: 1500 MG, CYCLE 4, DAY 1
     Dates: start: 20180518, end: 20180518
  3. CARBOPLATIN. [Suspect]
     Active Substance: CARBOPLATIN
     Dosage: 340 MG, CYCLE 2, DAY1
     Dates: start: 20180405, end: 20180405
  4. CARBOPLATIN. [Suspect]
     Active Substance: CARBOPLATIN
     Dosage: 340 MG, CYCLE 4, DAY1
     Dates: start: 20180518, end: 20180518
  5. AVELUMAB [Suspect]
     Active Substance: AVELUMAB
     Dosage: 860 MG, CYCLE 2, DAY1
     Dates: start: 20180405, end: 20180405
  6. CISPLATIN. [Suspect]
     Active Substance: CISPLATIN
     Indication: BLADDER TRANSITIONAL CELL CARCINOMA
     Dosage: 140 MG, CYCLE 1, DAY 1
     Dates: start: 20180316, end: 20180316
  7. PARACETAMOL [Concomitant]
     Active Substance: ACETAMINOPHEN
     Dosage: UNK, AS NEEDED
  8. METHYLPREDNISOLONE. [Concomitant]
     Active Substance: METHYLPREDNISOLONE
     Indication: PROPHYLAXIS
     Dosage: UNK
     Dates: start: 20180315
  9. INNOHEP [Concomitant]
     Active Substance: TINZAPARIN SODIUM
     Indication: PULMONARY EMBOLISM
     Dosage: UNK
     Dates: start: 20180511
  10. GEMCITABINE HYDROCHLORIDE. [Suspect]
     Active Substance: GEMCITABINE HYDROCHLORIDE
     Indication: BLADDER TRANSITIONAL CELL CARCINOMA
     Dosage: 2040 MG, CYCLE 1, DAY1
     Dates: start: 20180316, end: 20180316
  11. LERCAN [Concomitant]
     Active Substance: LERCANIDIPINE
     Dosage: UNK
  12. GEMCITABINE HYDROCHLORIDE. [Suspect]
     Active Substance: GEMCITABINE HYDROCHLORIDE
     Dosage: 1520 MG, CYCLE 3, DAY 1
     Dates: start: 20180427, end: 20180427
  13. GEMCITABINE HYDROCHLORIDE. [Suspect]
     Active Substance: GEMCITABINE HYDROCHLORIDE
     Dosage: 2080 MG, CYCLE 1, DAY 8
     Dates: start: 20180323, end: 20180323
  14. CARBOPLATIN. [Suspect]
     Active Substance: CARBOPLATIN
     Dosage: 320 MG, CYCLE 3, DAY1
     Dates: start: 20180427, end: 20180427
  15. ZOPHREN [ONDANSETRON] [Concomitant]
     Active Substance: ONDANSETRON
     Indication: PROPHYLAXIS
     Dosage: UNK
     Dates: start: 20180316
  16. AVELUMAB [Suspect]
     Active Substance: AVELUMAB
     Indication: BLADDER TRANSITIONAL CELL CARCINOMA
     Dosage: 860 MG, CYCLE 1, DAY1
     Dates: start: 20180316, end: 20180316
  17. AVELUMAB [Suspect]
     Active Substance: AVELUMAB
     Dosage: 850 MG, CYCLE 3, DAY1
     Dates: start: 20180427, end: 20180427
  18. GEMCITABINE HYDROCHLORIDE. [Suspect]
     Active Substance: GEMCITABINE HYDROCHLORIDE
     Dosage: 1520 MG, CYCLE 2, DAY 8
     Dates: start: 20180413, end: 20180413
  19. AVELUMAB [Suspect]
     Active Substance: AVELUMAB
     Dosage: 820 MG, CYCLE 4, DAY1
     Dates: start: 20180518, end: 20180518
  20. GEMCITABINE HYDROCHLORIDE. [Suspect]
     Active Substance: GEMCITABINE HYDROCHLORIDE
     Dosage: 1530 MG, CYCLE 2, DAY 1
     Dates: start: 20180405, end: 20180405
  21. MONOPROST [Concomitant]
     Active Substance: LATANOPROST
     Dosage: UNK

REACTIONS (1)
  - Motor dysfunction [Not Recovered/Not Resolved]

NARRATIVE: CASE EVENT DATE: 20180517
